FAERS Safety Report 7936444-0 (Version None)
Quarter: 2011Q4

REPORT INFORMATION
  Report Type: 
  Country: None (occurrence: None)
  Receive Date: 20111123
  Receipt Date: 20111121
  Transmission Date: 20120403
  Serious: Yes (Hospitalization)
  Sender: FDA-Public Use
  Company Number: DE-ELI_LILLY_AND_COMPANY-DE201111006145

PATIENT
  Age: 70 Year
  Sex: Male

DRUGS (2)
  1. CIALIS [Suspect]
     Dosage: UNK, SINGLE
     Route: 048
     Dates: start: 20111118, end: 20111118
  2. ANTIHYPERTENSIVES [Concomitant]
     Indication: HYPERTENSION

REACTIONS (6)
  - HOSPITALISATION [None]
  - FEELING ABNORMAL [None]
  - AMNESIA [None]
  - MEDICATION ERROR [None]
  - DIPLOPIA [None]
  - HYPERHIDROSIS [None]
